FAERS Safety Report 21770879 (Version 2)
Quarter: 2023Q1

REPORT INFORMATION
  Report Type: Spontaneous
  Country: US (occurrence: None)
  Receive Date: 20221223
  Receipt Date: 20230208
  Transmission Date: 20230418
  Serious: No
  Sender: FDA-Public Use
  Company Number: 2022A388007

PATIENT
  Age: 8549 Day
  Sex: Male
  Weight: 76.2 kg

DRUGS (2)
  1. BUDESONIDE\FORMOTEROL\GLYCOPYRRONIUM [Suspect]
     Active Substance: BUDESONIDE\FORMOTEROL\GLYCOPYRRONIUM
     Indication: Asthma
     Dosage: BREZTRI, 160/ 9/ 4.8 MCG, 2 INHALATION 2 TIMES A DAY
     Route: 055
     Dates: start: 20221118
  2. SYMBICORT [Suspect]
     Active Substance: BUDESONIDE\FORMOTEROL FUMARATE DIHYDRATE
     Indication: Asthma
     Dosage: SYMBICORT, 160/ 4.5, 2 INHALATIONS 2 TIMES A DAY
     Route: 055
     Dates: start: 2016, end: 20221118

REACTIONS (4)
  - Asthma [Unknown]
  - Incorrect dose administered by device [Unknown]
  - Device malfunction [Unknown]
  - Intentional device misuse [Unknown]

NARRATIVE: CASE EVENT DATE: 20221120
